FAERS Safety Report 15318618 (Version 1)
Quarter: 2018Q3

REPORT INFORMATION
  Report Type: Spontaneous
  Country: US (occurrence: US)
  Receive Date: 20180817
  Receipt Date: 20180817
  Transmission Date: 20181010
  Serious: No
  Sender: FDA-Public Use
  Company Number: None

PATIENT
  Age: 48 Year
  Sex: Female

DRUGS (1)
  1. HUMIRA [Suspect]
     Active Substance: ADALIMUMAB
     Indication: RHEUMATOID ARTHRITIS
     Route: 058
     Dates: start: 20180707

REACTIONS (11)
  - Gait disturbance [None]
  - Arthralgia [None]
  - Fatigue [None]
  - Paraesthesia [None]
  - Erythema [None]
  - Contusion [None]
  - Pain in extremity [None]
  - Peripheral swelling [None]
  - Musculoskeletal stiffness [None]
  - Hypoaesthesia [None]
  - Joint swelling [None]

NARRATIVE: CASE EVENT DATE: 20180805
